FAERS Safety Report 24585923 (Version 1)
Quarter: 2024Q4

REPORT INFORMATION
  Report Type: Report from Study
  Country: US (occurrence: US)
  Receive Date: 20241106
  Receipt Date: 20241106
  Transmission Date: 20250114
  Serious: Yes (Hospitalization)
  Sender: JAZZ
  Company Number: US-JAZZ PHARMACEUTICALS-2024-US-019820

PATIENT
  Sex: Male
  Weight: 74 kg

DRUGS (7)
  1. EPIDIOLEX [Suspect]
     Active Substance: CANNABIDIOL
     Indication: Product used for unknown indication
     Dosage: 875 MILLIGRAM
     Route: 048
     Dates: start: 20210629
  2. VITAMINS [Concomitant]
     Active Substance: VITAMINS
     Dosage: UNK
  3. VIMPAT [Concomitant]
     Active Substance: LACOSAMIDE
  4. LANSOPRAZOLE [Concomitant]
     Active Substance: LANSOPRAZOLE
  5. KLONOPIN [Concomitant]
     Active Substance: CLONAZEPAM
  6. ATIVAN [Concomitant]
     Active Substance: LORAZEPAM
  7. KEPPRA [Concomitant]
     Active Substance: LEVETIRACETAM

REACTIONS (1)
  - Hospitalisation [Unknown]

NARRATIVE: CASE EVENT DATE: 20230101
